FAERS Safety Report 14537490 (Version 6)
Quarter: 2018Q2

REPORT INFORMATION
  Report Type: Report from Study
  Country: US (occurrence: US)
  Receive Date: 20180215
  Receipt Date: 20180404
  Transmission Date: 20180711
  Serious: Yes (Other)
  Sender: FDA-Public Use
  Company Number: US-GILEAD-2018-0320797

PATIENT
  Age: 75 Year
  Sex: Female

DRUGS (13)
  1. RITUXAN [Suspect]
     Active Substance: RITUXIMAB
     Indication: B-CELL LYMPHOMA
     Dosage: UNK
     Route: 042
     Dates: start: 201607, end: 20180119
  2. AMIODARONE [Concomitant]
     Active Substance: AMIODARONE
     Indication: ARRHYTHMIA
     Dosage: UNKNOWN
  3. RITUXAN [Suspect]
     Active Substance: RITUXIMAB
     Indication: LEUKAEMIA
  4. IDELALISIB [Suspect]
     Active Substance: IDELALISIB
     Indication: B-CELL LYMPHOMA
     Dosage: 150 MG, BID
     Route: 048
     Dates: start: 20180208, end: 20180329
  5. CARVEDILOL. [Concomitant]
     Active Substance: CARVEDILOL
     Indication: HYPERTENSION
     Dosage: UNKNOWN
  6. CARVEDILOL. [Concomitant]
     Active Substance: CARVEDILOL
     Indication: CARDIAC FAILURE
  7. VITAMIN D3 [Concomitant]
     Active Substance: CHOLECALCIFEROL
     Dosage: 5000 IU, UNK
  8. SMZ-TMP [Concomitant]
     Active Substance: SULFAMETHOXAZOLE\TRIMETHOPRIM
     Dosage: DS 800/160MG BY MOUTH DAILY
     Dates: start: 201607
  9. FLUDARABINE PHOSPHATE. [Concomitant]
     Active Substance: FLUDARABINE PHOSPHATE
     Dosage: NOT PROVIDED, INTRAVENOUS INFUSION
     Route: 042
     Dates: start: 20180116, end: 20180118
  10. FUROSEMIDE. [Concomitant]
     Active Substance: FUROSEMIDE
     Indication: CARDIAC FAILURE CONGESTIVE
     Dosage: UNKNOWN
  11. BACTRIM [Concomitant]
     Active Substance: SULFAMETHOXAZOLE\TRIMETHOPRIM
  12. IDELALISIB [Suspect]
     Active Substance: IDELALISIB
     Indication: CHRONIC LYMPHOCYTIC LEUKAEMIA
  13. ATORVASTATIN [Concomitant]
     Active Substance: ATORVASTATIN
     Indication: BLOOD CHOLESTEROL INCREASED
     Dosage: UNKNOWN

REACTIONS (17)
  - Neoplasm progression [Not Recovered/Not Resolved]
  - Dysuria [Not Recovered/Not Resolved]
  - Blood urine present [Not Recovered/Not Resolved]
  - Product physical issue [Not Recovered/Not Resolved]
  - Joint neoplasm [Not Recovered/Not Resolved]
  - Vertigo [Not Recovered/Not Resolved]
  - Dizziness postural [Recovered/Resolved]
  - Breast neoplasm [Not Recovered/Not Resolved]
  - Kidney infection [Recovering/Resolving]
  - Intentional product use issue [Recovered/Resolved]
  - Constipation [Not Recovered/Not Resolved]
  - Product container issue [Not Recovered/Not Resolved]
  - Hypotension [Not Recovered/Not Resolved]
  - Drug dispensed to wrong patient [Recovered/Resolved]
  - Disease progression [Not Recovered/Not Resolved]
  - Drug ineffective [Not Recovered/Not Resolved]
  - Vomiting [Unknown]

NARRATIVE: CASE EVENT DATE: 201710
